FAERS Safety Report 25464753 (Version 1)
Quarter: 2025Q2

REPORT INFORMATION
  Report Type: Spontaneous
  Country: US (occurrence: US)
  Receive Date: 20250622
  Receipt Date: 20250622
  Transmission Date: 20250717
  Serious: No
  Sender: SANOFI AVENTIS
  Company Number: US-SA-2025SA175509

PATIENT
  Age: 60 Year
  Sex: Male

DRUGS (3)
  1. DUPIXENT [Suspect]
     Active Substance: DUPILUMAB
     Indication: Eczema
     Dosage: 300 MG, QOW
     Route: 058
     Dates: start: 2024
  2. DUPIXENT [Suspect]
     Active Substance: DUPILUMAB
     Dosage: 300 MG, QOW
     Route: 058
     Dates: start: 202504, end: 2025
  3. RINVOQ [Concomitant]
     Active Substance: UPADACITINIB

REACTIONS (5)
  - Erythema [Unknown]
  - Condition aggravated [Unknown]
  - Skin exfoliation [Unknown]
  - Condition aggravated [Unknown]
  - Eczema [Unknown]

NARRATIVE: CASE EVENT DATE: 20240101
